FAERS Safety Report 19037211 (Version 1)
Quarter: 2021Q1

REPORT INFORMATION
  Report Type: Spontaneous
  Country: CA (occurrence: CA)
  Receive Date: 20210322
  Receipt Date: 20210322
  Transmission Date: 20210420
  Serious: Yes (Other)
  Sender: FDA-Public Use
  Company Number: CA-ROCHE-2793889

PATIENT
  Sex: Female

DRUGS (2)
  1. TRASTUZUMAB. [Suspect]
     Active Substance: TRASTUZUMAB
     Indication: BREAST CANCER
     Route: 041
  2. TAXOL [Suspect]
     Active Substance: PACLITAXEL
     Indication: BREAST CANCER
     Route: 065

REACTIONS (7)
  - Headache [Recovered/Resolved]
  - Lymphadenopathy [Recovered/Resolved]
  - Thyroid mass [Recovered/Resolved]
  - Heart rate increased [Recovered/Resolved]
  - Hepatic cyst [Recovered/Resolved]
  - Pulmonary mass [Recovered/Resolved]
  - Haemoglobin decreased [Recovered/Resolved]
